FAERS Safety Report 25353948 (Version 1)
Quarter: 2025Q2

REPORT INFORMATION
  Report Type: Spontaneous
  Country: US (occurrence: US)
  Receive Date: 20250523
  Receipt Date: 20250523
  Transmission Date: 20250717
  Serious: Yes (Life-Threatening)
  Sender: PFIZER
  Company Number: US-PFIZER INC-001-0719-990002

PATIENT
  Age: 56 Year
  Sex: Female

DRUGS (1)
  1. LOPID [Suspect]
     Active Substance: GEMFIBROZIL
     Indication: Hyperlipidaemia
     Route: 048

REACTIONS (1)
  - Gastroenteritis eosinophilic [Recovered/Resolved]
